FAERS Safety Report 6276109-7 (Version None)
Quarter: 2009Q3

REPORT INFORMATION
  Report Type: 
  Country: None (occurrence: None)
  Receive Date: 20090717
  Receipt Date: 20090717
  Transmission Date: 20100115
  Serious: Yes (Other)
  Sender: FDA-Public Use
  Company Number: None

PATIENT
  Sex: Male
  Weight: 100.6985 kg

DRUGS (2)
  1. KETOCONAZOLE 2% CREAM 60GM TEVA PHARMACEUTICALS, SELLERSVILLE,  PA 189 [Suspect]
     Indication: PRURITUS
     Dosage: APPLY TO SKIN TWICE DAILY
     Dates: start: 20090707
  2. KETOCONAZOLE 2% CREAM 60GM TEVA PHARMACEUTICALS, SELLERSVILLE,  PA 189 [Suspect]
     Indication: RASH
     Dosage: APPLY TO SKIN TWICE DAILY
     Dates: start: 20090707

REACTIONS (4)
  - CONDITION AGGRAVATED [None]
  - PRURITUS [None]
  - RASH [None]
  - SKIN BURNING SENSATION [None]
